FAERS Safety Report 9756789 (Version 1)
Quarter: 2013Q4

REPORT INFORMATION
  Report Type: Spontaneous
  Country: US (occurrence: US)
  Receive Date: 20131213
  Receipt Date: 20131213
  Transmission Date: 20140711
  Serious: No
  Sender: FDA-Public Use
  Company Number: US-009507513-1310USA014884

PATIENT
  Sex: Female

DRUGS (1)
  1. NEXPLANON [Suspect]
     Indication: CONTRACEPTION
     Dosage: 1 DF/3 YEARS
     Route: 059
     Dates: start: 20131028, end: 20131029

REACTIONS (2)
  - Device expulsion [Recovered/Resolved]
  - No adverse event [Unknown]
